FAERS Safety Report 9982728 (Version 1)
Quarter: 2014Q1

REPORT INFORMATION
  Report Type: Spontaneous
  Country: US (occurrence: None)
  Receive Date: 20140128
  Receipt Date: 20140128
  Transmission Date: 20141002
  Serious: Yes (Hospitalization)
  Sender: FDA-Public Use
  Company Number: A-NJ2013-84969

PATIENT
  Age: 64 Year
  Sex: Female

DRUGS (4)
  1. TRACLEER [Suspect]
     Indication: SYSTEMIC SCLEROSIS
     Route: 048
  2. SILDENAFIL (SILDENAFIL) ) [Concomitant]
  3. LETAIRIS (AMBRISENTAN) (TABLETS) [Concomitant]
  4. PLAVIX (CLOPIDOGREL BUSULFATE) [Concomitant]

REACTIONS (3)
  - Haemoglobin decreased [None]
  - Transfusion [None]
  - Dizziness [None]
